FAERS Safety Report 6112424-5 (Version None)
Quarter: 2009Q1

REPORT INFORMATION
  Report Type: 
  Country: None (occurrence: None)
  Receive Date: 20090312
  Receipt Date: 20090302
  Transmission Date: 20090719
  Serious: Yes (Other)
  Sender: FDA-Public Use
  Company Number: PHHY2009GB07877

PATIENT
  Sex: Female

DRUGS (1)
  1. CLOZARIL [Suspect]
     Indication: SCHIZOPHRENIA
     Dosage: 450MG DAILY
     Route: 048
     Dates: start: 19960229

REACTIONS (2)
  - COLLAPSE OF LUNG [None]
  - LOWER RESPIRATORY TRACT INFECTION [None]
